FAERS Safety Report 7031233-6 (Version None)
Quarter: 2010Q4

REPORT INFORMATION
  Report Type: 
  Country: None (occurrence: None)
  Receive Date: 20101006
  Receipt Date: 20101001
  Transmission Date: 20110411
  Serious: Yes (Hospitalization)
  Sender: FDA-Public Use
  Company Number: A0836109A

PATIENT
  Age: 63 Year
  Sex: Female
  Weight: 93.6 kg

DRUGS (7)
  1. AVANDIA [Suspect]
     Dosage: 4MG THREE TIMES PER DAY
     Route: 048
     Dates: start: 20040101
  2. AVANDAMET [Suspect]
     Route: 048
  3. METFORMIN [Concomitant]
  4. HYDROCHLOROTHIAZIDE [Concomitant]
  5. LIPITOR [Concomitant]
  6. ASPIRIN [Concomitant]
  7. COREG [Concomitant]

REACTIONS (2)
  - CORONARY ARTERY DISEASE [None]
  - MYOCARDIAL INFARCTION [None]
